FAERS Safety Report 9310710 (Version 2)
Quarter: 2013Q2

REPORT INFORMATION
  Report Type: Report from Study
  Country: IT (occurrence: IT)
  Receive Date: 20130527
  Receipt Date: 20130605
  Transmission Date: 20140414
  Serious: No
  Sender: FDA-Public Use
  Company Number: IT-009507513-1305ITA012703

PATIENT
  Sex: 0

DRUGS (2)
  1. SYCREST [Suspect]
     Indication: BIPOLAR DISORDER
     Dosage: 15-20MG/DAY
     Route: 060
  2. SYCREST [Suspect]
     Dosage: 5-10MG/DAY
     Route: 060

REACTIONS (2)
  - Vertigo [Unknown]
  - Orthostatic hypotension [Unknown]
